FAERS Safety Report 14066382 (Version 1)
Quarter: 2017Q4

REPORT INFORMATION
  Report Type: Spontaneous
  Country: US (occurrence: US)
  Receive Date: 20171010
  Receipt Date: 20171010
  Transmission Date: 20180321
  Serious: No
  Sender: FDA-Public Use
  Company Number: PHEH2017US032575

PATIENT
  Sex: Female

DRUGS (1)
  1. AFINITOR [Suspect]
     Active Substance: EVEROLIMUS
     Indication: NEUROENDOCRINE TUMOUR
     Route: 065

REACTIONS (5)
  - Blood glucose increased [Unknown]
  - Muscle atrophy [Unknown]
  - Weight decreased [Unknown]
  - Heart rate decreased [Unknown]
  - Malabsorption [Unknown]
